FAERS Safety Report 12920920 (Version 1)
Quarter: 2016Q4

REPORT INFORMATION
  Report Type: Spontaneous
  Country: US (occurrence: US)
  Receive Date: 20161104
  Receipt Date: 20161104
  Transmission Date: 20170207
  Serious: Yes (Hospitalization)
  Sender: FDA-Public Use
  Company Number: None

PATIENT
  Age: 68 Year
  Sex: Male
  Weight: 77 kg

DRUGS (2)
  1. WARFARIN [Suspect]
     Active Substance: WARFARIN
     Indication: VASCULAR STENT RESTENOSIS
     Dates: start: 20160714, end: 20161005
  2. CLOPIDOGREL [Suspect]
     Active Substance: CLOPIDOGREL BISULFATE
     Indication: CEREBROVASCULAR ACCIDENT
     Route: 048
     Dates: start: 20010101, end: 20161005

REACTIONS (14)
  - Subdural haemorrhage [None]
  - Mallory-Weiss syndrome [None]
  - Carotid artery bypass [None]
  - Post procedural complication [None]
  - Sepsis [None]
  - Cervical vertebral fracture [None]
  - Cerebrovascular accident [None]
  - Fall [None]
  - Gastric ulcer [None]
  - Large intestine polyp [None]
  - Diverticulum [None]
  - Multiple injuries [None]
  - Peripheral ischaemia [None]
  - Pyrexia [None]

NARRATIVE: CASE EVENT DATE: 20161005
